FAERS Safety Report 6393041-9 (Version None)
Quarter: 2009Q4

REPORT INFORMATION
  Report Type: 
  Country: None (occurrence: None)
  Receive Date: 20091008
  Receipt Date: 20070807
  Transmission Date: 20100525
  Serious: Yes (Other)
  Sender: FDA-Public Use
  Company Number: US-ASTRAZENECA-2006UW12315

PATIENT
  Age: 22 Year
  Sex: Female
  Weight: 97.3 kg

DRUGS (9)
  1. SEROQUEL [Suspect]
     Indication: DEPRESSION
     Dosage: 50 MG-200 MG
     Route: 048
     Dates: start: 20040213, end: 20050218
  2. SEROQUEL [Suspect]
     Indication: HALLUCINATION, AUDITORY
     Dosage: 50 MG-200 MG
     Route: 048
     Dates: start: 20040213, end: 20050218
  3. SEROQUEL [Suspect]
     Route: 048
     Dates: start: 20040101, end: 20050101
  4. SEROQUEL [Suspect]
     Route: 048
     Dates: start: 20040101, end: 20050101
  5. RISPERDAL [Concomitant]
  6. ZYPREXA [Concomitant]
  7. PAXIL [Concomitant]
  8. REDREN [Concomitant]
  9. LEXAPRO [Concomitant]
     Dates: start: 20040213

REACTIONS (6)
  - DIABETES COMPLICATING PREGNANCY [None]
  - DIABETES MELLITUS [None]
  - DIABETES MELLITUS INADEQUATE CONTROL [None]
  - DRUG EXPOSURE DURING PREGNANCY [None]
  - GESTATIONAL DIABETES [None]
  - TYPE 1 DIABETES MELLITUS [None]
